FAERS Safety Report 25897319 (Version 1)
Quarter: 2025Q4

REPORT INFORMATION
  Report Type: Report from Study
  Country: US (occurrence: US)
  Receive Date: 20251008
  Receipt Date: 20251008
  Transmission Date: 20260118
  Serious: Yes (Other)
  Sender: SANDOZ
  Company Number: US-SANDOZ-SDZ2025US072788

PATIENT
  Age: 59 Year
  Sex: Female

DRUGS (1)
  1. HYRIMOZ [Suspect]
     Active Substance: ADALIMUMAB-ADAZ
     Indication: Psoriatic arthropathy
     Dosage: 40 MG, Q2W
     Route: 058
     Dates: start: 20250625, end: 20250825

REACTIONS (3)
  - Myalgia [Recovered/Resolved]
  - Oropharyngeal pain [Recovered/Resolved]
  - Headache [Recovered/Resolved]

NARRATIVE: CASE EVENT DATE: 20250709
